FAERS Safety Report 6642615-6 (Version None)
Quarter: 2010Q1

REPORT INFORMATION
  Report Type: 
  Country: None (occurrence: None)
  Receive Date: 20100319
  Receipt Date: 20100316
  Transmission Date: 20100710
  Serious: Yes (Hospitalization)
  Sender: FDA-Public Use
  Company Number: AU-MERCK-1003USA02300

PATIENT
  Sex: Female

DRUGS (14)
  1. ZOCOR [Suspect]
     Route: 048
     Dates: start: 20090701
  2. ALPHAPRESS [Suspect]
     Route: 048
     Dates: start: 20091015, end: 20100122
  3. HYDRALAZINE HYDROCHLORIDE [Suspect]
     Route: 065
  4. IVABRADINE [Suspect]
     Route: 065
  5. BRICANYL [Concomitant]
     Route: 055
  6. CLEMENTS TONIC (NEW FORMULA) [Concomitant]
     Route: 048
  7. CORALAN [Concomitant]
     Route: 048
     Dates: start: 20090719, end: 20100125
  8. OLMESARTAN MEDOXOMIL AND HYDROCHLOROTHIZIDE [Concomitant]
     Route: 048
  9. PLAVIX [Concomitant]
     Route: 048
  10. SYMBICORT [Concomitant]
     Route: 055
  11. LEVOTHYROXINE SODIUM [Concomitant]
     Route: 048
  12. TILADE [Concomitant]
     Route: 055
  13. ZANIDIP [Concomitant]
     Route: 048
  14. ZIMSTAT [Concomitant]
     Route: 048
     Dates: end: 20100125

REACTIONS (1)
  - GRANULOMATOUS LIVER DISEASE [None]
